FAERS Safety Report 24990132 (Version 2)
Quarter: 2025Q1

REPORT INFORMATION
  Report Type: Spontaneous
  Country: JP (occurrence: JP)
  Receive Date: 20250220
  Receipt Date: 20250306
  Transmission Date: 20250409
  Serious: Yes (Hospitalization)
  Sender: BAUSCH AND LOMB
  Company Number: JP-MLMSERVICE-20250212-PI406914-00117-1

PATIENT
  Age: 73 Year
  Sex: Male
  Weight: 57.9 kg

DRUGS (2)
  1. DEXAMETHASONE [Suspect]
     Active Substance: DEXAMETHASONE
     Indication: Primary amyloidosis
     Route: 065
     Dates: start: 201805
  2. MELPHALAN [Suspect]
     Active Substance: MELPHALAN
     Indication: Primary amyloidosis
     Route: 065
     Dates: start: 201805

REACTIONS (2)
  - Acute myeloid leukaemia [Not Recovered/Not Resolved]
  - Cytogenetic abnormality [Unknown]

NARRATIVE: CASE EVENT DATE: 20190801
